FAERS Safety Report 14237966 (Version 3)
Quarter: 2019Q1

REPORT INFORMATION
  Report Type: Report from Study
  Country: None (occurrence: US)
  Receive Date: 20171130
  Receipt Date: 20190311
  Transmission Date: 20190417
  Serious: Yes (Hospitalization, Other)
  Sender: FDA-Public Use
  Company Number: US-ABBVIE-17K-163-2084451-00

PATIENT
  Age: 46 Year
  Sex: Female

DRUGS (1)
  1. HUMIRA [Suspect]
     Active Substance: ADALIMUMAB
     Indication: RHEUMATOID ARTHRITIS
     Route: 058

REACTIONS (6)
  - Infection [Unknown]
  - Device fastener issue [Unknown]
  - Osteoarthritis [Unknown]
  - Knee arthroplasty [Unknown]
  - Hospitalisation [Unknown]
  - Knee operation [Unknown]

NARRATIVE: CASE EVENT DATE: 201712
